FAERS Safety Report 19309513 (Version 1)
Quarter: 2021Q2

REPORT INFORMATION
  Report Type: Spontaneous
  Country: US (occurrence: US)
  Receive Date: 20210526
  Receipt Date: 20210526
  Transmission Date: 20210717
  Serious: Yes (Hospitalization, Other)
  Sender: FDA-Public Use
  Company Number: US-APOTEX-2021AP012576

PATIENT
  Age: 60 Year
  Sex: Female

DRUGS (3)
  1. GEMCITABINE. [Suspect]
     Active Substance: GEMCITABINE
     Indication: METASTATIC NEOPLASM
     Dosage: 1 GRAM/SQUARE METRE (ON DAY 1, 8) EVERY THREE WEEKS PER CYCLE
     Route: 042
  2. GEMCITABINE. [Suspect]
     Active Substance: GEMCITABINE
     Indication: CONDITION AGGRAVATED
  3. GEMCITABINE. [Suspect]
     Active Substance: GEMCITABINE
     Indication: INVASIVE DUCTAL BREAST CARCINOMA

REACTIONS (2)
  - Nausea [Unknown]
  - Posterior reversible encephalopathy syndrome [Recovered/Resolved]
